FAERS Safety Report 6600203-1 (Version None)
Quarter: 2010Q1

REPORT INFORMATION
  Report Type: 
  Country: None (occurrence: None)
  Receive Date: 20100224
  Receipt Date: 20100219
  Transmission Date: 20100710
  Serious: Yes (Hospitalization)
  Sender: FDA-Public Use
  Company Number: B0634847A

PATIENT
  Sex: Female

DRUGS (15)
  1. AUGMENTIN '125' [Suspect]
     Dosage: 1G TWICE PER DAY
     Route: 042
     Dates: start: 20100115, end: 20100125
  2. LOVENOX [Suspect]
     Indication: DRUG USE FOR UNKNOWN INDICATION
     Route: 058
     Dates: start: 20100115, end: 20100124
  3. SEROPRAM [Suspect]
     Indication: DRUG USE FOR UNKNOWN INDICATION
     Dosage: 20MG PER DAY
     Route: 065
     Dates: start: 20100115
  4. NEXIUM [Suspect]
     Indication: DRUG USE FOR UNKNOWN INDICATION
     Dosage: 20MG PER DAY
     Route: 048
     Dates: start: 20100115, end: 20100118
  5. VENTOLIN [Concomitant]
     Route: 065
  6. CACIT D3 [Concomitant]
     Dosage: 1UNIT PER DAY
     Route: 065
  7. FORLAX [Concomitant]
     Route: 065
  8. DOLIPRANE [Concomitant]
     Route: 065
  9. ACTISKENAN [Concomitant]
     Dosage: 5MG THREE TIMES PER DAY
     Route: 065
  10. STILNOX [Concomitant]
     Route: 065
  11. FOSAMAX [Concomitant]
     Dosage: 70MG WEEKLY
     Route: 065
  12. DIFFU K [Concomitant]
     Route: 065
  13. SEROPLEX [Concomitant]
     Dosage: 10MG PER DAY
     Route: 065
  14. MEMANTINE HCL [Concomitant]
     Dosage: 10MG PER DAY
     Route: 065
  15. ASPIRIN [Concomitant]
     Dosage: 75MG PER DAY
     Route: 065

REACTIONS (2)
  - LEUKOCYTOSIS [None]
  - THROMBOCYTOPENIA [None]
